FAERS Safety Report 6827070-5 (Version None)
Quarter: 2010Q3

REPORT INFORMATION
  Report Type: 
  Country: None (occurrence: None)
  Receive Date: 20100709
  Receipt Date: 20100630
  Transmission Date: 20110219
  Serious: Yes (Disabling)
  Sender: FDA-Public Use
  Company Number: NO-MERCK-1007NOR00002

PATIENT
  Age: 58 Year
  Sex: Male

DRUGS (5)
  1. FOSAMAX [Suspect]
     Indication: OSTEOPOROSIS
     Route: 048
     Dates: start: 20090101, end: 20100504
  2. ASPIRIN AND MAGNESIUM OXIDE [Concomitant]
     Indication: THROMBOSIS PROPHYLAXIS
     Route: 048
  3. BISOPROLOL FUMARATE [Concomitant]
     Indication: HYPERTENSION
     Route: 048
  4. ASCORBIC ACID AND CALCIUM PHOSPHATE, DIBASIC AND CHOLECALCIFEROL [Concomitant]
     Indication: MINERAL SUPPLEMENTATION
     Route: 048
  5. VALSARTAN [Concomitant]
     Indication: HYPERTENSION
     Route: 048

REACTIONS (1)
  - STRESS FRACTURE [None]
